FAERS Safety Report 5863953-0 (Version None)
Quarter: 2008Q3

REPORT INFORMATION
  Report Type: 
  Country: None (occurrence: None)
  Receive Date: 20080829
  Receipt Date: 20080827
  Transmission Date: 20090109
  Serious: Yes (Hospitalization)
  Sender: FDA-Public Use
  Company Number: US-BRISTOL-MYERS SQUIBB COMPANY-14313142

PATIENT
  Age: 22 Year
  Sex: Male

DRUGS (11)
  1. TOBRAMYCIN [Suspect]
     Dosage: ALSO TAKEN INHALED 300MG TWICE DAILY
     Route: 042
  2. CIPROFLOXACIN [Suspect]
     Route: 048
  3. VANCOMYCIN HYDROCHLORIDE [Suspect]
     Route: 042
  4. PIPERACILLIN AND TAZOBACTAM [Suspect]
     Route: 042
  5. TOBRAMYCIN [Suspect]
     Route: 055
  6. SALBUTAMOL [Concomitant]
  7. IPRATROPIUM BROMIDE [Concomitant]
  8. COLISTIMETHATE SODIUM [Concomitant]
  9. MULTI-VITAMINS [Concomitant]
  10. DIGESTIVE ENZYMES [Concomitant]
  11. PULMOZYME [Concomitant]

REACTIONS (1)
  - NEURALGIC AMYOTROPHY [None]
